FAERS Safety Report 9401504 (Version 1)
Quarter: 2013Q3

REPORT INFORMATION
  Report Type: Spontaneous
  Country: US (occurrence: US)
  Receive Date: 20130716
  Receipt Date: 20130716
  Transmission Date: 20140515
  Serious: Yes (Disabling)
  Sender: FDA-Public Use
  Company Number: US-ROCHE-1249152

PATIENT
  Sex: Female

DRUGS (5)
  1. XOLAIR [Suspect]
     Indication: PRODUCT USED FOR UNKNOWN INDICATION
     Route: 065
  2. XOLAIR [Suspect]
     Indication: ASTHMA
     Route: 058
     Dates: start: 201011
  3. SERETIDE [Concomitant]
     Route: 065
     Dates: start: 20100705
  4. SINGULAIR [Concomitant]
     Route: 065
     Dates: start: 20100705
  5. XYZALL [Concomitant]
     Route: 065
     Dates: start: 20100705

REACTIONS (2)
  - Asthenia [Not Recovered/Not Resolved]
  - Fatigue [Unknown]
